FAERS Safety Report 5071674-X (Version None)
Quarter: 2006Q3

REPORT INFORMATION
  Report Type: 
  Country: None (occurrence: None)
  Receive Date: 20060804
  Receipt Date: 19910103
  Transmission Date: 20061208
  Serious: Yes (Hospitalization)
  Sender: FDA-Public Use
  Company Number: 1991AH00028

PATIENT
  Age: 44 Year
  Sex: Male

DRUGS (2)
  1. LOSEC [Suspect]
     Indication: BARRETT'S OESOPHAGUS
     Route: 048
  2. LOSEC [Suspect]
     Route: 048

REACTIONS (3)
  - ANGIONEUROTIC OEDEMA [None]
  - BRONCHOSPASM [None]
  - URTICARIA [None]
